FAERS Safety Report 10662273 (Version 1)
Quarter: 2014Q4

REPORT INFORMATION
  Report Type: Spontaneous
  Country: US (occurrence: US)
  Receive Date: 20141218
  Receipt Date: 20141218
  Transmission Date: 20150529
  Serious: No
  Sender: FDA-Public Use
  Company Number: US-PFIZER INC-2014346859

PATIENT
  Age: 71 Year
  Sex: Male

DRUGS (1)
  1. CELEBREX [Suspect]
     Active Substance: CELECOXIB
     Dosage: MORE THAN 200MG

REACTIONS (3)
  - Myalgia [Unknown]
  - Abdominal discomfort [Unknown]
  - Abdominal pain upper [Unknown]
